FAERS Safety Report 7753540-1 (Version None)
Quarter: 2011Q3

REPORT INFORMATION
  Report Type: 
  Country: None (occurrence: None)
  Receive Date: 20110915
  Receipt Date: 20110909
  Transmission Date: 20111222
  Serious: Yes (Death, Hospitalization, Other)
  Sender: FDA-Public Use
  Company Number: JP-JNJFOC-20091100336

PATIENT
  Sex: Female
  Weight: 40 kg

DRUGS (11)
  1. AZUNOL [Concomitant]
     Indication: GASTROINTESTINAL DISORDER THERAPY
     Route: 049
     Dates: start: 20090708
  2. PREDNISOLONE [Concomitant]
     Indication: PNEUMOCYSTIS JIROVECI PNEUMONIA
     Route: 048
     Dates: start: 20091126, end: 20091130
  3. XYLOCAINE [Concomitant]
     Indication: GASTROINTESTINAL DISORDER THERAPY
     Route: 049
     Dates: start: 20090907
  4. FIRSTCIN [Concomitant]
     Indication: PNEUMOCYSTIS JIROVECI PNEUMONIA
     Route: 042
     Dates: start: 20091120, end: 20091123
  5. DOXORUBICIN HCL [Suspect]
     Dosage: CYCLE 1
     Route: 042
     Dates: start: 20090708, end: 20090708
  6. SULFAMETHOXAZOLE [Concomitant]
     Indication: PNEUMOCYSTIS JIROVECI PNEUMONIA
     Route: 048
     Dates: start: 20091126, end: 20091130
  7. GRAN [Concomitant]
     Indication: PNEUMOCYSTIS JIROVECI PNEUMONIA
     Dosage: DOSE:75 MICRO GRAM
     Route: 042
     Dates: start: 20091120, end: 20091124
  8. DOXORUBICIN HCL [Suspect]
     Indication: OVARIAN CANCER RECURRENT
     Dosage: CYCLE 4
     Route: 042
     Dates: start: 20091030, end: 20091030
  9. DOXORUBICIN HCL [Suspect]
     Dosage: CYCLE 3
     Route: 042
     Dates: start: 20090928, end: 20090928
  10. DOXORUBICIN HCL [Suspect]
     Dosage: CYCLE 2
     Route: 042
     Dates: start: 20090817, end: 20090817
  11. DORIPENEM MONOHYDRATE [Concomitant]
     Indication: PNEUMOCYSTIS JIROVECI PNEUMONIA
     Route: 042
     Dates: start: 20091124, end: 20091125

REACTIONS (5)
  - ALOPECIA [None]
  - DISEASE PROGRESSION [None]
  - NEUTROPHIL COUNT DECREASED [None]
  - PNEUMOCYSTIS JIROVECI PNEUMONIA [None]
  - STOMATITIS [None]
